FAERS Safety Report 5455612-3 (Version None)
Quarter: 2007Q3

REPORT INFORMATION
  Report Type: 
  Country: None (occurrence: None)
  Receive Date: 20070918
  Receipt Date: 20070830
  Transmission Date: 20080115
  Serious: Yes (Life-Threatening)
  Sender: FDA-Public Use
  Company Number: JP-JNJFOC-20070805389

PATIENT
  Age: 47 Year
  Sex: Female

DRUGS (1)
  1. ITRIZOLE [Suspect]
     Indication: NAIL TINEA
     Route: 048

REACTIONS (2)
  - ANAEMIA [None]
  - DRUG ERUPTION [None]
